FAERS Safety Report 12349714 (Version 1)
Quarter: 2016Q2

REPORT INFORMATION
  Report Type: Not Available
  Country: FR (occurrence: FR)
  Receive Date: 20160510
  Receipt Date: 20160510
  Transmission Date: 20160815
  Serious: Yes (Hospitalization)
  Sender: FDA-Public Use
  Company Number: FR-BEH-2016062252

PATIENT
  Age: 55 Year
  Sex: Male

DRUGS (3)
  1. PRIVIGEN [Suspect]
     Active Substance: HUMAN IMMUNOGLOBULIN G
     Dosage: L326300121 (20 G), ALSO REPORTED 18-MAR-2016 WITH 1ST COURSE OF INTRAVENOUS IMMUNOGLOBULINS [SIC!]
     Route: 042
     Dates: start: 20160319, end: 20160323
  2. PRIVIGEN [Suspect]
     Active Substance: HUMAN IMMUNOGLOBULIN G
     Indication: AXONAL NEUROPATHY
     Dosage: L326200077 (10 G), ALSO REPORTED 18-MAR-2016 WITH 1ST COURSE OF INTRAVENOUS IMMUNOGLOBULINS [SIC!]
     Route: 042
     Dates: start: 20160319, end: 20160323
  3. INEXIUM [Concomitant]
     Active Substance: ESOMEPRAZOLE

REACTIONS (6)
  - Pyrexia [Recovered/Resolved]
  - Hot flush [Recovered/Resolved]
  - Chills [Recovered/Resolved]
  - Headache [Recovered/Resolved]
  - Infusion site phlebitis [Recovered/Resolved]
  - Vessel puncture site inflammation [Recovered/Resolved]

NARRATIVE: CASE EVENT DATE: 20160321
